FAERS Safety Report 6145620-1 (Version None)
Quarter: 2009Q2

REPORT INFORMATION
  Report Type: 
  Country: None (occurrence: None)
  Receive Date: 20090406
  Receipt Date: 20090406
  Transmission Date: 20091009
  Serious: Yes (Hospitalization)
  Sender: FDA-Public Use
  Company Number: None

PATIENT
  Sex: Female
  Weight: 45.3597 kg

DRUGS (4)
  1. DURACEF 500MGM [Suspect]
     Indication: WOUND
     Dosage: 500MGM CAPSULES 1 EVERY 12 HRS PO
     Route: 048
     Dates: start: 20081101
  2. BACITRACIN TOPICAL OINTMENT [Concomitant]
  3. GAUZE [Concomitant]
  4. TAPE [Concomitant]

REACTIONS (1)
  - HOSPITALISATION [None]
